FAERS Safety Report 23731519 (Version 1)
Quarter: 2024Q2

REPORT INFORMATION
  Report Type: Spontaneous
  Country: US (occurrence: None)
  Receive Date: 20240410
  Receipt Date: 20240410
  Transmission Date: 20240716
  Serious: Yes (Hospitalization)
  Sender: FDA-Public Use
  Company Number: None

PATIENT
  Age: 63 Year
  Sex: Female

DRUGS (1)
  1. IBRANCE [Suspect]
     Active Substance: PALBOCICLIB
     Indication: Breast cancer female
     Dosage: FREQUENCY : AS DIRECTED;?
     Route: 048
     Dates: start: 20240315

REACTIONS (5)
  - Haemorrhoids [None]
  - Haemoglobin decreased [None]
  - White blood cell count decreased [None]
  - Fatigue [None]
  - Intentional dose omission [None]

NARRATIVE: CASE EVENT DATE: 20240404
